FAERS Safety Report 4788901-6 (Version None)
Quarter: 2005Q4

REPORT INFORMATION
  Report Type: 
  Country: None (occurrence: None)
  Receive Date: 20051004
  Receipt Date: 20050916
  Transmission Date: 20060501
  Serious: Yes (Life-Threatening)
  Sender: FDA-Public Use
  Company Number: JP_050807240

PATIENT
  Age: 50 Year
  Sex: Male
  Weight: 54 kg

DRUGS (2)
  1. GEMZAR [Suspect]
     Indication: LUNG CARCINOMA CELL TYPE UNSPECIFIED STAGE III
     Dosage: 1200 MG OTHER
     Route: 050
     Dates: start: 20050713, end: 20050720
  2. CARBOPLATIN [Concomitant]

REACTIONS (12)
  - BLOOD PH DECREASED [None]
  - CONSTIPATION [None]
  - EMPHYSEMA [None]
  - HYPERCAPNIA [None]
  - PCO2 DECREASED [None]
  - PCO2 INCREASED [None]
  - PNEUMOTHORAX [None]
  - PO2 INCREASED [None]
  - PRODUCTIVE COUGH [None]
  - PYREXIA [None]
  - STATUS ASTHMATICUS [None]
  - THERAPY NON-RESPONDER [None]
